FAERS Safety Report 10983977 (Version 3)
Quarter: 2015Q3

REPORT INFORMATION
  Report Type: Spontaneous
  Country: US (occurrence: None)
  Receive Date: 20150401
  Receipt Date: 20150709
  Transmission Date: 20151125
  Serious: Yes (Disabling, Other)
  Sender: FDA-Public Use
  Company Number: 2015-10653

PATIENT
  Age: 67 Year
  Sex: Male
  Weight: 77 kg

DRUGS (1)
  1. EYLEA [Suspect]
     Active Substance: AFLIBERCEPT
     Indication: CYSTOID MACULAR OEDEMA
     Route: 031
     Dates: start: 20140826, end: 20140826

REACTIONS (5)
  - Retinal detachment [None]
  - Vitrectomy [None]
  - Ocular hypertension [None]
  - Blindness transient [None]
  - Refraction disorder [None]

NARRATIVE: CASE EVENT DATE: 20140826
